FAERS Safety Report 8345060-0 (Version None)
Quarter: 2012Q2

REPORT INFORMATION
  Report Type: 
  Country: None (occurrence: None)
  Receive Date: 20120508
  Receipt Date: 20120427
  Transmission Date: 20120825
  Serious: Yes (Death, Hospitalization)
  Sender: FDA-Public Use
  Company Number: US-ACTELION-A-NJ2012-63945

PATIENT

DRUGS (2)
  1. CALCIUM CHANNEL BLOCKERS [Concomitant]
  2. TRACLEER [Suspect]
     Indication: PULMONARY ARTERIAL HYPERTENSION
     Dosage: UNK
     Route: 048
     Dates: start: 20080218

REACTIONS (6)
  - PNEUMONIA [None]
  - DYSPNOEA [None]
  - PLEURAL EFFUSION [None]
  - HYPERSENSITIVITY [None]
  - DEATH [None]
  - FUNGAL INFECTION [None]
